FAERS Safety Report 8833265 (Version 2)
Quarter: 2012Q4

REPORT INFORMATION
  Report Type: Report from Study
  Country: US (occurrence: US)
  Receive Date: 20121010
  Receipt Date: 20121011
  Transmission Date: 20130627
  Serious: Yes (Death, Hospitalization)
  Sender: FDA-Public Use
  Company Number: PHHO2012US014372

PATIENT
  Age: 63 Year

DRUGS (7)
  1. ZOLEDRONATE [Suspect]
     Indication: METASTASES TO BONE
     Dosage: every 3 months
     Route: 048
     Dates: end: 20120927
  2. MORPHINE [Concomitant]
  3. OCTREOTIDE [Concomitant]
  4. DECADRON [Concomitant]
  5. PROTONIX [Concomitant]
  6. REGLAN [Concomitant]
  7. CEFTRIAXONE [Concomitant]

REACTIONS (2)
  - Obstructive uropathy [Fatal]
  - Breast cancer metastatic [Fatal]
